FAERS Safety Report 6839401-0 (Version None)
Quarter: 2010Q3

REPORT INFORMATION
  Report Type: 
  Country: None (occurrence: None)
  Receive Date: 20100714
  Receipt Date: 20100706
  Transmission Date: 20110219
  Serious: Yes (Hospitalization)
  Sender: FDA-Public Use
  Company Number: SE-JNJFOC-20080804394

PATIENT
  Age: 59 Year
  Sex: Female

DRUGS (5)
  1. REMICADE [Suspect]
     Indication: CROHN'S DISEASE
     Route: 042
  2. REMICADE [Suspect]
     Route: 042
  3. REMICADE [Suspect]
     Indication: ANKYLOSING SPONDYLITIS
     Route: 042
  4. REMICADE [Suspect]
     Route: 042
  5. SULFASALAZINE [Concomitant]

REACTIONS (7)
  - ANXIETY [None]
  - INFLUENZA [None]
  - MALIGNANT MELANOMA [None]
  - RASH PAPULAR [None]
  - SCRATCH [None]
  - SKIN CANCER [None]
  - SKIN PAPILLOMA [None]
